FAERS Safety Report 25266751 (Version 2)
Quarter: 2025Q2

REPORT INFORMATION
  Report Type: Spontaneous
  Country: CN (occurrence: CN)
  Receive Date: 20250505
  Receipt Date: 20250526
  Transmission Date: 20250717
  Serious: No
  Sender: BLUEPRINT MEDICINES
  Company Number: CN-CSTONE PHARMACEUTICALS (SUZHOU) CO., LTD.-2025CN00229

PATIENT
  Age: 68 Year
  Sex: Female

DRUGS (7)
  1. AYVAKIT [Suspect]
     Active Substance: AVAPRITINIB
     Indication: Gastrointestinal stromal tumour
     Dosage: 200 MILLIGRAM, QD
     Route: 048
     Dates: start: 202407
  2. AYVAKIT [Suspect]
     Active Substance: AVAPRITINIB
     Dosage: 200 MILLIGRAM, QD
     Route: 048
     Dates: start: 2025
  3. AYVAKIT [Suspect]
     Active Substance: AVAPRITINIB
     Route: 065
  4. ENTECAVIR [Concomitant]
     Active Substance: ENTECAVIR
     Indication: Prophylaxis
     Route: 048
  5. Amber (fossilized tree resin) [Concomitant]
     Indication: Prophylaxis
     Route: 048
  6. Amber (fossilized tree resin) [Concomitant]
     Indication: Supplementation therapy
  7. LEUCOGEN [Concomitant]
     Active Substance: LEUCOGEN
     Indication: Supplementation therapy
     Route: 065

REACTIONS (2)
  - Intentional product use issue [Unknown]
  - Influenza [Recovering/Resolving]

NARRATIVE: CASE EVENT DATE: 20240701
